FAERS Safety Report 5421632-8 (Version None)
Quarter: 2007Q3

REPORT INFORMATION
  Report Type: 
  Country: None (occurrence: None)
  Receive Date: 20070817
  Receipt Date: 20060825
  Transmission Date: 20080115
  Serious: Yes (Other)
  Sender: FDA-Public Use
  Company Number: USBAX-L-20070009

PATIENT

DRUGS (4)
  1. NAVELBINE [Suspect]
     Indication: BREAST CANCER
     Dosage: 25 MG/M2 1 X WK IV
     Route: 042
  2. NAVELBINE [Suspect]
     Indication: BREAST CANCER
     Dosage: 25 MG/M2 1 X WK IV
     Route: 042
  3. CAPECITABINE [Suspect]
     Indication: BREAST CANCER
     Dosage: 825 MG/M2
  4. DOCETAXEL [Suspect]
     Indication: BREAST CANCER
     Dosage: 25 MG/M2 1 X WK PO
     Route: 048

REACTIONS (1)
  - NEUTROPENIA [None]
